FAERS Safety Report 8922958 (Version 6)
Quarter: 2013Q1

REPORT INFORMATION
  Report Type: Spontaneous
  Country: BE (occurrence: BE)
  Receive Date: 20121123
  Receipt Date: 20130118
  Transmission Date: 20140127
  Serious: Yes (Other)
  Sender: FDA-Public Use
  Company Number: BE-PFIZER INC-2012260767

PATIENT
  Age: 63 Year
  Sex: Female

DRUGS (4)
  1. LANSOPRAZOLE [Suspect]
     Indication: REFLUX GASTRITIS
     Dosage: 15 MG, UNK
     Route: 048
  2. PANTOPRAZOLE [Suspect]
     Indication: REFLUX GASTRITIS
     Dosage: 20 MG, WAS TAKEN EACH MORNING
     Route: 048
     Dates: start: 2005, end: 2005
  3. OMEPRAZOLE [Suspect]
     Indication: REFLUX GASTRITIS
     Dosage: 20 MG, 1X/DAY
     Route: 048
     Dates: start: 1995, end: 2005
  4. OMEPRAZOLE [Suspect]
     Indication: GASTROOESOPHAGEAL REFLUX DISEASE

REACTIONS (8)
  - Prurigo [Recovered/Resolved]
  - Rash papular [Recovered/Resolved]
  - Rash erythematous [Recovered/Resolved]
  - Pruritus [Recovered/Resolved]
  - Burning sensation [Recovered/Resolved]
  - Drug hypersensitivity [Recovered/Resolved]
  - Dry mouth [Recovered/Resolved]
  - Dizziness [Recovered/Resolved]
